FAERS Safety Report 17690623 (Version 1)
Quarter: 2020Q2

REPORT INFORMATION
  Report Type: Spontaneous
  Country: DE (occurrence: DE)
  Receive Date: 20200421
  Receipt Date: 20200421
  Transmission Date: 20200714
  Serious: Yes (Hospitalization)
  Sender: FDA-Public Use
  Company Number: DE-TEVA-2020-DE-1226014

PATIENT
  Age: 80 Year
  Sex: Female

DRUGS (11)
  1. LEVOTHYROXIN-NATRIUM [Concomitant]
     Active Substance: LEVOTHYROXINE SODIUM
     Dosage: 0.075 MG, 1-0-0-0. 0.08 MG
  2. PREDNISOLONE. [Suspect]
     Active Substance: PREDNISOLONE
     Dosage: 15 MILLIGRAM DAILY; 5 MG, 3-0-0-0. 15 MG
  3. ROPINIROL [Concomitant]
     Active Substance: ROPINIROLE
     Dosage: 2 MG, 1-0-1-0
  4. OXYCODON 5MG [Concomitant]
     Active Substance: OXYCODONE
     Dosage: 5 MILLIGRAM DAILY; 5 MG, 1-0-0-0
  5. TORASEMID [Concomitant]
     Active Substance: TORSEMIDE
     Dosage: 50 MG, 2-1-0-0. 150 MG
  6. INSULIN LISPRO [Concomitant]
     Active Substance: INSULIN LISPRO
     Dosage: 600 IE, 4-6-8-0
  7. PHENPROCOUMON [Concomitant]
     Active Substance: PHENPROCOUMON
     Dosage: 3 MG, BY VALUE
  8. PANTOPRAZOL [Concomitant]
     Active Substance: PANTOPRAZOLE SODIUM
     Dosage: 40 MILLIGRAM DAILY; 40 MG, 0-0-1-0
  9. OXYCODON 10 MG [Concomitant]
     Dosage: 10 MG, 2-0-1-0, PROLONGED-RELEASE TABLETS. 30 MG
  10. BISOPROLOL [Concomitant]
     Active Substance: BISOPROLOL
     Dosage: 5 MG, 1-0-1-0
  11. MACROGOL [Concomitant]
     Active Substance: POLYETHYLENE GLYCOLS
     Dosage: NK MG, 1-0-0-0

REACTIONS (1)
  - Spinal pain [Unknown]

NARRATIVE: CASE EVENT DATE: 20190926
